FAERS Safety Report 15656852 (Version 1)
Quarter: 2018Q4

REPORT INFORMATION
  Report Type: Spontaneous
  Country: US (occurrence: US)
  Receive Date: 20181126
  Receipt Date: 20181126
  Transmission Date: 20190205
  Serious: Yes (Hospitalization)
  Sender: FDA-Public Use
  Company Number: None

PATIENT
  Age: 72 Year
  Sex: Female

DRUGS (7)
  1. FORTEO [Suspect]
     Active Substance: TERIPARATIDE
     Indication: OSTEOPOROSIS
     Route: 058
     Dates: start: 20180710
  2. FORTEO [Suspect]
     Active Substance: TERIPARATIDE
     Indication: PATHOLOGICAL FRACTURE
     Route: 058
     Dates: start: 20180710
  3. ONDANSETRON 8MG [Concomitant]
     Active Substance: ONDANSETRON
  4. OXYCODONE 15MG [Concomitant]
     Active Substance: OXYCODONE
  5. VITAMIN B-12 2000MCG [Concomitant]
  6. OMEPRAZOLE 20MG [Concomitant]
     Active Substance: OMEPRAZOLE
  7. TAMSULOSIN 0.4MG [Concomitant]
     Active Substance: TAMSULOSIN

REACTIONS (3)
  - Product dose omission [None]
  - Nephrolithiasis [None]
  - Kidney infection [None]

NARRATIVE: CASE EVENT DATE: 20181030
